FAERS Safety Report 6837374-8 (Version None)
Quarter: 2010Q3

REPORT INFORMATION
  Report Type: 
  Country: None (occurrence: None)
  Receive Date: 20100713
  Receipt Date: 20070511
  Transmission Date: 20110219
  Serious: No
  Sender: FDA-Public Use
  Company Number: US-PFIZER INC-2007038614

PATIENT
  Sex: Female
  Weight: 67.727 kg

DRUGS (7)
  1. CHANTIX [Suspect]
     Indication: SMOKING CESSATION THERAPY
     Dates: start: 20070504
  2. SYNTHROID [Concomitant]
  3. ATENOLOL [Concomitant]
  4. AMBIEN [Concomitant]
  5. XANAX [Concomitant]
  6. MULTI-VITAMINS [Concomitant]
  7. CALCIUM [Concomitant]

REACTIONS (1)
  - NAUSEA [None]
